FAERS Safety Report 4347585-1 (Version None)
Quarter: 2004Q2

REPORT INFORMATION
  Report Type: 
  Country: None (occurrence: None)
  Receive Date: 20040422
  Receipt Date: 20040409
  Transmission Date: 20050107
  Serious: Yes (Hospitalization, Other)
  Sender: FDA-Public Use
  Company Number: 2004019978

PATIENT
  Sex: Male
  Weight: 102.0593 kg

DRUGS (6)
  1. NEURONTIN [Suspect]
     Indication: NEURALGIA
     Dosage: ORAL
     Route: 048
  2. NEURONTIN [Suspect]
     Indication: NEUROPATHIC PAIN
     Dosage: ORAL
     Route: 048
  3. ACETYLSALICYLIC ACID SRT [Concomitant]
  4. WARFARIN SODIUM [Concomitant]
  5. METOPROLOL TARTRATE [Concomitant]
  6. FUROSEMIDE [Concomitant]

REACTIONS (8)
  - ABDOMINAL DISCOMFORT [None]
  - ASTHMA [None]
  - CARDIAC DISORDER [None]
  - DIZZINESS [None]
  - DRUG INEFFECTIVE [None]
  - HEART VALVE REPLACEMENT [None]
  - PAIN EXACERBATED [None]
  - PHARMACEUTICAL PRODUCT COMPLAINT [None]
